FAERS Safety Report 18918519 (Version 1)
Quarter: 2021Q1

REPORT INFORMATION
  Report Type: Spontaneous
  Country: FR (occurrence: FR)
  Receive Date: 20210219
  Receipt Date: 20210219
  Transmission Date: 20210420
  Serious: Yes (Death)
  Sender: FDA-Public Use
  Company Number: FR-CANTON LABORATORIES, LLC-2107059

PATIENT
  Age: 52 Year
  Sex: Female

DRUGS (5)
  1. NAPROSYN [Suspect]
     Active Substance: NAPROXEN
     Indication: ARTHRALGIA
     Route: 048
     Dates: start: 20210125
  2. VOLTARENE EMULGEL [Suspect]
     Active Substance: DICLOFENAC DIETHYLAMINE
     Route: 003
     Dates: start: 20210125
  3. COMIRNATY [Suspect]
     Active Substance: TOZINAMERAN
     Route: 030
     Dates: start: 20210204
  4. INEXIUM [Concomitant]
     Active Substance: ESOMEPRAZOLE
     Route: 065
  5. LYSANXIA [Concomitant]
     Active Substance: PRAZEPAM
     Route: 065

REACTIONS (2)
  - Sudden death [Fatal]
  - Headache [Unknown]

NARRATIVE: CASE EVENT DATE: 20210204
